FAERS Safety Report 10079104 (Version 1)
Quarter: 2014Q2

REPORT INFORMATION
  Report Type: Spontaneous
  Country: US (occurrence: US)
  Receive Date: 20140415
  Receipt Date: 20140415
  Transmission Date: 20141212
  Serious: Yes (Other)
  Sender: FDA-Public Use
  Company Number: US-ASTRAZENECA-2014SE24148

PATIENT
  Sex: Male

DRUGS (5)
  1. SYMBICORT [Suspect]
     Route: 055
  2. VALPROIC ACID [Concomitant]
  3. CELEXA [Concomitant]
  4. TEMAZEPAM [Concomitant]
  5. ZYPREXA [Concomitant]

REACTIONS (2)
  - Suicidal ideation [Unknown]
  - Abnormal dreams [Unknown]
